FAERS Safety Report 14298530 (Version 2)
Quarter: 2018Q1

REPORT INFORMATION
  Report Type: Report from Study
  Country: TR (occurrence: TR)
  Receive Date: 20171218
  Receipt Date: 20180131
  Transmission Date: 20180509
  Serious: Yes (Death, Other)
  Sender: FDA-Public Use
  Company Number: TR-ACTELION-A-NJ2017-164426

PATIENT
  Age: 73 Year
  Sex: Female
  Weight: 45 kg

DRUGS (1)
  1. VENTAVIS [Suspect]
     Active Substance: ILOPROST
     Indication: PULMONARY ARTERIAL HYPERTENSION
     Dosage: UNK
     Route: 055
     Dates: start: 201703

REACTIONS (4)
  - Product use issue [Unknown]
  - Hepatic cirrhosis [Unknown]
  - Hepatic cancer stage IV [Fatal]
  - Renal failure [Fatal]

NARRATIVE: CASE EVENT DATE: 20170327
